FAERS Safety Report 7563629-8 (Version None)
Quarter: 2011Q2

REPORT INFORMATION
  Report Type: 
  Country: None (occurrence: None)
  Receive Date: 20110622
  Receipt Date: 20110613
  Transmission Date: 20111010
  Serious: Yes (Hospitalization)
  Sender: FDA-Public Use
  Company Number: US-BRISTOL-MYERS SQUIBB COMPANY-14590301

PATIENT
  Age: 77 Year
  Sex: Male

DRUGS (5)
  1. PLACEBO [Suspect]
     Indication: THROMBOSIS PROPHYLAXIS
     Dosage: INTERRUPTED ON 15APR09
     Route: 048
     Dates: start: 20090310
  2. ASPIRIN [Concomitant]
     Dates: start: 20000229
  3. TOPROL-XL [Concomitant]
     Dosage: 1-1/2 TAB DAILY
     Dates: start: 20090303
  4. LOVASTATIN [Concomitant]
     Dates: start: 20021118
  5. WARFARIN SODIUM [Suspect]
     Indication: THROMBOSIS PROPHYLAXIS
     Dosage: INTERRUPTED ON 15APR09
     Route: 048
     Dates: start: 20090310

REACTIONS (2)
  - HAEMOPTYSIS [None]
  - PNEUMONIA PRIMARY ATYPICAL [None]
